FAERS Safety Report 22314454 (Version 1)
Quarter: 2023Q2

REPORT INFORMATION
  Report Type: Spontaneous
  Country: US (occurrence: US)
  Receive Date: 20230512
  Receipt Date: 20230512
  Transmission Date: 20230722
  Serious: Yes (Other)
  Sender: FDA-Public Use
  Company Number: US-002147023-NVSC2023US106977

PATIENT
  Age: 42 Year
  Sex: Male

DRUGS (12)
  1. TIGECYCLINE [Suspect]
     Active Substance: TIGECYCLINE
     Indication: Mycobacterium abscessus infection
     Dosage: UNK (6 WEEKS INTO TREATMENT)
     Route: 042
  2. TIGECYCLINE [Suspect]
     Active Substance: TIGECYCLINE
     Indication: Abdominal wall abscess
  3. TIGECYCLINE [Suspect]
     Active Substance: TIGECYCLINE
     Indication: Inguinal hernia
  4. LINEZOLID [Suspect]
     Active Substance: LINEZOLID
     Indication: Mycobacterium abscessus infection
     Dosage: UNK (6 WEEKS INTO TREATMENT)
     Route: 048
  5. LINEZOLID [Suspect]
     Active Substance: LINEZOLID
     Indication: Abdominal wall abscess
  6. LINEZOLID [Suspect]
     Active Substance: LINEZOLID
     Indication: Inguinal hernia
  7. IMIPENEM [Suspect]
     Active Substance: IMIPENEM
     Indication: Mycobacterium abscessus infection
     Dosage: UNK (6 WEEKS INTO TREATMENT)
     Route: 042
  8. IMIPENEM [Suspect]
     Active Substance: IMIPENEM
     Indication: Abdominal wall abscess
  9. IMIPENEM [Suspect]
     Active Substance: IMIPENEM
     Indication: Inguinal hernia
  10. AMIKACIN [Suspect]
     Active Substance: AMIKACIN
     Indication: Mycobacterium abscessus infection
     Dosage: UNK (6 WEEKS INTO TREATMENT)
     Route: 042
  11. AMIKACIN [Suspect]
     Active Substance: AMIKACIN
     Indication: Abdominal wall abscess
  12. AMIKACIN [Suspect]
     Active Substance: AMIKACIN
     Indication: Inguinal hernia

REACTIONS (1)
  - Leukopenia [Unknown]
